FAERS Safety Report 5344437-5 (Version None)
Quarter: 2007Q2

REPORT INFORMATION
  Report Type: 
  Country: None (occurrence: None)
  Receive Date: 20070604
  Receipt Date: 20070528
  Transmission Date: 20071010
  Serious: Yes (Hospitalization)
  Sender: FDA-Public Use
  Company Number: FR-PFIZER INC-2002068296

PATIENT
  Age: 39 Year
  Sex: Female

DRUGS (7)
  1. ATARAX [Suspect]
     Indication: ANXIETY
     Dosage: DAILY DOSE:75MG-FREQ:TID
     Route: 048
  2. ORO-PIVALONE [Suspect]
     Indication: NASOPHARYNGITIS
     Dosage: FREQ:UNKNOWN
     Route: 048
     Dates: start: 20021014, end: 20021018
  3. RULID [Suspect]
     Indication: NASOPHARYNGITIS
     Dosage: DAILY DOSE:150MG-FREQ:DAILY
     Route: 048
     Dates: start: 20021014, end: 20021018
  4. FRAMYXONE [Suspect]
     Indication: OTITIS EXTERNA
     Dosage: FREQ:UNKNOWN
     Route: 048
     Dates: start: 20021014, end: 20021018
  5. SPASFON [Suspect]
     Indication: ILL-DEFINED DISORDER
     Dosage: FREQ:UNKNOWN
     Route: 048
     Dates: start: 20021014, end: 20021018
  6. DAFALGAN [Suspect]
     Indication: PYREXIA
     Dosage: FREQ:UNKNOWN
     Route: 048
     Dates: start: 20021014, end: 20021018
  7. ALPHA-AMYLASE ^BAYER^ [Concomitant]
     Route: 065

REACTIONS (7)
  - DRUG ERUPTION [None]
  - LYMPHADENOPATHY [None]
  - OEDEMA PERIPHERAL [None]
  - PAIN [None]
  - RASH ERYTHEMATOUS [None]
  - RASH SCARLATINIFORM [None]
  - SKIN EXFOLIATION [None]
